FAERS Safety Report 21443963 (Version 2)
Quarter: 2022Q4

REPORT INFORMATION
  Report Type: Spontaneous
  Country: US (occurrence: US)
  Receive Date: 20221012
  Receipt Date: 20221104
  Transmission Date: 20230113
  Serious: No
  Sender: FDA-Public Use
  Company Number: US-JNJFOC-20220948906

PATIENT
  Age: 60 Year
  Sex: Female
  Weight: 62.652 kg

DRUGS (1)
  1. TREMFYA [Suspect]
     Active Substance: GUSELKUMAB
     Indication: Psoriatic arthropathy
     Route: 065
     Dates: start: 20220923

REACTIONS (6)
  - Wrong technique in product usage process [Unknown]
  - Needle issue [Unknown]
  - Accidental exposure to product [Unknown]
  - Product dose omission issue [Unknown]
  - Skin plaque [Unknown]
  - Joint swelling [Unknown]

NARRATIVE: CASE EVENT DATE: 20220923
